FAERS Safety Report 14382523 (Version 2)
Quarter: 2018Q1

REPORT INFORMATION
  Report Type: Spontaneous
  Country: BE (occurrence: BE)
  Receive Date: 20180112
  Receipt Date: 20180116
  Transmission Date: 20180509
  Serious: Yes (Death)
  Sender: FDA-Public Use
  Company Number: NL-SA-2018SA000758

PATIENT
  Sex: Male

DRUGS (1)
  1. STILNOCT [Suspect]
     Active Substance: ZOLPIDEM TARTRATE
     Route: 048

REACTIONS (4)
  - Abnormal behaviour [Unknown]
  - Pulmonary embolism [Fatal]
  - Alcohol interaction [Unknown]
  - Intentional product misuse [Unknown]
